FAERS Safety Report 6259700-3 (Version None)
Quarter: 2009Q3

REPORT INFORMATION
  Report Type: 
  Country: None (occurrence: None)
  Receive Date: 20090701
  Receipt Date: 20090617
  Transmission Date: 20100115
  Serious: Yes (Other)
  Sender: FDA-Public Use
  Company Number: 2009211509

PATIENT
  Age: 38 Year
  Sex: Female
  Weight: 60 kg

DRUGS (1)
  1. FRAGMIN [Suspect]
     Indication: HYPERCOAGULATION
     Dosage: 5000 IU, SUBCUTANEOUS
     Route: 058

REACTIONS (2)
  - DIZZINESS [None]
  - MEDICAL DEVICE COMPLICATION [None]
